FAERS Safety Report 24560943 (Version 1)
Quarter: 2024Q4

REPORT INFORMATION
  Report Type: Spontaneous
  Country: US (occurrence: None)
  Receive Date: 20241028
  Receipt Date: 20241028
  Transmission Date: 20250115
  Serious: Yes (Death)
  Sender: Public
  Company Number: None

PATIENT
  Age: 75 Year
  Sex: Female
  Weight: 49.95 kg

DRUGS (13)
  1. REVLIMID [Suspect]
     Active Substance: LENALIDOMIDE
     Indication: Plasma cell myeloma
     Dosage: FREQUENCY : DAILY;?
     Route: 048
     Dates: start: 20241002, end: 20241021
  2. DEXAMETHASONE [Concomitant]
     Active Substance: DEXAMETHASONE
  3. MS Contin 15 mg tablet,extended release [Concomitant]
  4. OXYCODONE HYDROCHLORIDE 5 MG TABS [Concomitant]
  5. ACYCLOVIR [Concomitant]
     Active Substance: ACYCLOVIR
  6. Hydrocortisone 10mg [Concomitant]
  7. lactulose 10 gram/15 mL (15 mL) oral solution [Concomitant]
  8. ondansetron 4 mg disintegrating tablet [Concomitant]
  9. amlodipine 2.5 mg tablet [Concomitant]
  10. Imitrex 100 mg tablet [Concomitant]
  11. magnesium 400 mg (as magnesium oxide) tablet [Concomitant]
  12. levothyroxine 75 mcg tablet [Concomitant]
  13. Vitamin D3 50 mcg (2,000 unit) tablet [Concomitant]

REACTIONS (1)
  - Death [None]

NARRATIVE: CASE EVENT DATE: 20241021
